FAERS Safety Report 6313076-1 (Version None)
Quarter: 2009Q3

REPORT INFORMATION
  Report Type: 
  Country: None (occurrence: None)
  Receive Date: 20090814
  Receipt Date: 20090810
  Transmission Date: 20100115
  Serious: Yes (Death)
  Sender: FDA-Public Use
  Company Number: 2009SP019221

PATIENT
  Age: 31 Year
  Sex: Male

DRUGS (1)
  1. NOXAFIL [Suspect]
     Indication: DRUG USE FOR UNKNOWN INDICATION
     Dosage: 200 MG; QID; PO
     Route: 048
     Dates: start: 20090506, end: 20090807

REACTIONS (1)
  - NO THERAPEUTIC RESPONSE [None]
